FAERS Safety Report 5008028-8 (Version None)
Quarter: 2006Q2

REPORT INFORMATION
  Report Type: 
  Country: None (occurrence: None)
  Receive Date: 20060404
  Receipt Date: 20050506
  Transmission Date: 20061013
  Serious: Yes (Other)
  Sender: FDA-Public Use
  Company Number: 2005072926

PATIENT
  Age: 39 Year
  Sex: Female

DRUGS (5)
  1. GEODON [Suspect]
     Indication: BIPOLAR DISORDER
     Dosage: (80 MG, UNKNOWN), ORAL
     Route: 048
     Dates: start: 20030505, end: 20030901
  2. SEROQUEL [Concomitant]
  3. TOPAMAX [Concomitant]
  4. TRILEPTAL [Concomitant]
  5. AMBIEN [Concomitant]

REACTIONS (4)
  - DYSTONIA [None]
  - HEAD TITUBATION [None]
  - TORTICOLLIS [None]
  - TREMOR [None]
